FAERS Safety Report 9395266 (Version 2)
Quarter: 2013Q3

REPORT INFORMATION
  Report Type: Spontaneous
  Country: DE (occurrence: DE)
  Receive Date: 20130711
  Receipt Date: 20130821
  Transmission Date: 20140515
  Serious: Yes (Other)
  Sender: FDA-Public Use
  Company Number: DE-SHIRE-ALL1-2013-04603

PATIENT
  Age: 15 Year
  Sex: Male
  Weight: 32 kg

DRUGS (2)
  1. ELAPRASE [Suspect]
     Indication: MUCOPOLYSACCHARIDOSIS II
     Dosage: 18 MG (3 VIALS), UNKNOWN
     Route: 041
     Dates: start: 200702, end: 2013
  2. VALPROAT [Suspect]
     Indication: GRAND MAL CONVULSION
     Dosage: UNK, UNKNOWN
     Route: 065
     Dates: start: 201305, end: 20130701

REACTIONS (2)
  - Pancreatitis [Recovering/Resolving]
  - Cholelithiasis [Unknown]
